FAERS Safety Report 8285797-5 (Version None)
Quarter: 2012Q2

REPORT INFORMATION
  Report Type: 
  Country: None (occurrence: None)
  Receive Date: 20120413
  Receipt Date: 20120406
  Transmission Date: 20120825
  Serious: Yes (Hospitalization, Other)
  Sender: FDA-Public Use
  Company Number: US-ELI_LILLY_AND_COMPANY-US200806005662

PATIENT
  Sex: Female
  Weight: 53.515 kg

DRUGS (5)
  1. EVISTA [Suspect]
     Indication: OSTEOPOROSIS
     Dosage: 60 MG, QD
     Route: 048
     Dates: start: 20060101, end: 20070301
  2. CITRACAL + D [Concomitant]
     Indication: SUPPLEMENTATION THERAPY
     Dosage: 2000 MG, UNK
  3. EVISTA [Suspect]
     Dosage: 60 MG, QD
     Dates: start: 20070401
  4. ACIPHEX [Concomitant]
     Indication: BARRETT'S OESOPHAGUS
  5. MULTI-VITAMIN [Concomitant]
     Dosage: UNK, QD

REACTIONS (5)
  - BONE DENSITY DECREASED [None]
  - DRUG INEFFECTIVE [None]
  - BENIGN BREAST NEOPLASM [None]
  - HIP FRACTURE [None]
  - FALL [None]
